FAERS Safety Report 6263449-0 (Version None)
Quarter: 2009Q3

REPORT INFORMATION
  Report Type: 
  Country: None (occurrence: None)
  Receive Date: 20090710
  Receipt Date: 20090228
  Transmission Date: 20100115
  Serious: No
  Sender: FDA-Public Use
  Company Number: A0771394A

PATIENT
  Sex: Male

DRUGS (1)
  1. FLOVENT [Suspect]
     Indication: ASTHMA
     Route: 055

REACTIONS (1)
  - REACTION TO PRESERVATIVES [None]
